FAERS Safety Report 8850298 (Version 2)
Quarter: 2012Q4

REPORT INFORMATION
  Report Type: 
  Country: CN (occurrence: CN)
  Receive Date: 20121019
  Receipt Date: 20121102
  Transmission Date: 20130627
  Serious: Yes (Hospitalization)
  Sender: FDA-Public Use
  Company Number: CN-ABBOTT-12P-035-0995608-00

PATIENT
  Age: 44 Year
  Sex: Male

DRUGS (4)
  1. VALPROATE [Suspect]
     Indication: CONVULSION PROPHYLAXIS
     Route: 048
  2. VALPROATE [Suspect]
     Route: 042
  3. GLYCEROL [Concomitant]
     Indication: PRODUCT USED FOR UNKNOWN INDICATION
  4. FRUCTOSE [Concomitant]
     Indication: PRODUCT USED FOR UNKNOWN INDICATION

REACTIONS (4)
  - Restlessness [Recovered/Resolved]
  - Hyperammonaemic encephalopathy [Recovered/Resolved]
  - Tonic clonic movements [Recovered/Resolved]
  - Coma [Recovered/Resolved]
